FAERS Safety Report 6847433-1 (Version None)
Quarter: 2010Q3

REPORT INFORMATION
  Report Type: 
  Country: None (occurrence: None)
  Receive Date: 20100713
  Receipt Date: 20100628
  Transmission Date: 20110219
  Serious: Yes (Hospitalization)
  Sender: FDA-Public Use
  Company Number: 1000014968

PATIENT
  Age: 66 Year
  Sex: Male

DRUGS (8)
  1. ESCITALOPRAM [Suspect]
     Indication: DEPRESSION
     Dosage: 20 MG (10 MG, 2 IN 1 D), ORAL
     Route: 048
     Dates: end: 20090719
  2. ESCITALOPRAM [Suspect]
     Indication: DEPRESSION
     Dosage: 10 MG (10 MG, 1 IN 1 D), ORAL
     Route: 048
     Dates: start: 20090720
  3. LIPANTHYL [Suspect]
     Dosage: ORAL
     Route: 048
     Dates: end: 20090701
  4. NORSET [Suspect]
     Indication: DEPRESSION
     Dosage: ORAL
     Route: 048
     Dates: end: 20090720
  5. IMOVANE [Concomitant]
  6. LARGACTIL [Concomitant]
  7. SERESTA [Concomitant]
  8. LITHIUM CARBONATE [Concomitant]

REACTIONS (2)
  - CYTOLYTIC HEPATITIS [None]
  - HYPOMANIA [None]
